FAERS Safety Report 19090478 (Version 5)
Quarter: 2021Q2

REPORT INFORMATION
  Report Type: Spontaneous
  Country: JP (occurrence: JP)
  Receive Date: 20210405
  Receipt Date: 20210618
  Transmission Date: 20210717
  Serious: Yes (Hospitalization, Other)
  Sender: FDA-Public Use
  Company Number: JP-ASTELLAS-2021JP006236

PATIENT
  Age: 52 Year
  Sex: Male

DRUGS (1)
  1. XOSPATA [Suspect]
     Active Substance: GILTERITINIB
     Indication: ACUTE MYELOID LEUKAEMIA
     Route: 048
     Dates: start: 20210303

REACTIONS (3)
  - Pyrexia [Recovered/Resolved]
  - Cytopenia [Recovering/Resolving]
  - Cytopenia [Recovered/Resolved]

NARRATIVE: CASE EVENT DATE: 20210308
